FAERS Safety Report 18143657 (Version 1)
Quarter: 2020Q3

REPORT INFORMATION
  Report Type: Spontaneous
  Country: JP (occurrence: JP)
  Receive Date: 20200813
  Receipt Date: 20200813
  Transmission Date: 20201103
  Serious: Yes (Life-Threatening, Hospitalization, Other)
  Sender: FDA-Public Use
  Company Number: JP-LUPIN PHARMACEUTICALS INC.-2020-04346

PATIENT
  Age: 18 Year
  Sex: Female

DRUGS (5)
  1. DAPAGLIFLOZIN. [Suspect]
     Active Substance: DAPAGLIFLOZIN
     Indication: PRODUCT USED FOR UNKNOWN INDICATION
     Dosage: 25 MILLIGRAM, TOTAL
     Route: 065
  2. GLIMEPIRIDE. [Suspect]
     Active Substance: GLIMEPIRIDE
     Indication: PRODUCT USED FOR UNKNOWN INDICATION
     Dosage: 7 MILLIGRAM, TOTAL
     Route: 065
  3. METFORMIN [Suspect]
     Active Substance: METFORMIN HYDROCHLORIDE
     Indication: PRODUCT USED FOR UNKNOWN INDICATION
     Dosage: 16000 MILLIGRAM, TOTAL (64 TABLETS)
     Route: 065
  4. ATORVASTATIN CALCIUM TABLETS , 10 MG [Suspect]
     Active Substance: ATORVASTATIN CALCIUM
     Indication: PRODUCT USED FOR UNKNOWN INDICATION
     Dosage: 1 DOSAGE FORM
     Route: 065
  5. VILDAGLIPTIN [Suspect]
     Active Substance: VILDAGLIPTIN
     Indication: PRODUCT USED FOR UNKNOWN INDICATION
     Dosage: 1300 MILLIGRAM, TOTAL (26 TABLETS)
     Route: 065

REACTIONS (9)
  - Capillary leak syndrome [Recovering/Resolving]
  - Blood creatinine increased [Unknown]
  - Compartment syndrome [Recovering/Resolving]
  - Bradypnoea [Unknown]
  - Lactic acidosis [Unknown]
  - Intentional overdose [Unknown]
  - Blood pressure abnormal [Unknown]
  - Hypoglycaemia [Unknown]
  - Suicide attempt [Unknown]
